FAERS Safety Report 21149435 (Version 1)
Quarter: 2022Q3

REPORT INFORMATION
  Report Type: Spontaneous
  Country: US (occurrence: None)
  Receive Date: 20220729
  Receipt Date: 20220729
  Transmission Date: 20221026
  Serious: Yes (Hospitalization, Other)
  Sender: FDA-Public Use
  Company Number: 2022A264073

PATIENT
  Sex: Male
  Weight: 122.5 kg

DRUGS (1)
  1. BUDESONIDE\FORMOTEROL\GLYCOPYRRONIUM [Suspect]
     Active Substance: BUDESONIDE\FORMOTEROL\GLYCOPYRRONIUM
     Dosage: 160/9/4.8 MCG, 2 PUFFS
     Route: 055

REACTIONS (6)
  - Fall [Unknown]
  - Contusion [Unknown]
  - Productive cough [Unknown]
  - Dyspnoea [Unknown]
  - Intentional product use issue [Unknown]
  - Device ineffective [Unknown]
